FAERS Safety Report 12297023 (Version 1)
Quarter: 2016Q2

REPORT INFORMATION
  Report Type: Spontaneous
  Country: BR (occurrence: BR)
  Receive Date: 20160422
  Receipt Date: 20160422
  Transmission Date: 20160815
  Serious: Yes (Other)
  Sender: FDA-Public Use
  Company Number: BR-ELI_LILLY_AND_COMPANY-BR201604004747

PATIENT
  Age: 56 Year
  Sex: Female
  Weight: 75 kg

DRUGS (3)
  1. HUMULIN N [Suspect]
     Active Substance: INSULIN HUMAN
     Indication: DIABETES MELLITUS
     Dosage: 30 IU, BID
     Route: 058
     Dates: start: 2009
  2. JANUMET [Concomitant]
     Active Substance: METFORMIN HYDROCHLORIDE\SITAGLIPTIN PHOSPHATE
     Indication: DIABETES MELLITUS
     Dosage: UNK, UNKNOWN
     Route: 065
  3. HUMALOG [Concomitant]
     Active Substance: INSULIN LISPRO
     Indication: DIABETES MELLITUS
     Dosage: 5 IU, BID
     Route: 058
     Dates: start: 2009

REACTIONS (6)
  - Drug ineffective [Recovered/Resolved]
  - Dizziness [Recovered/Resolved]
  - Neuropathy peripheral [Unknown]
  - Blood glucose increased [Recovered/Resolved]
  - Hypertension [Unknown]
  - Poor peripheral circulation [Unknown]

NARRATIVE: CASE EVENT DATE: 20160415
